FAERS Safety Report 7488976-X (Version None)
Quarter: 2011Q1

REPORT INFORMATION
  Report Type: 
  Country: None (occurrence: None)
  Receive Date: 20110316
  Receipt Date: 20101203
  Transmission Date: 20110831
  Serious: Yes (Other)
  Sender: FDA-Public Use
  Company Number: 10-001699

PATIENT
  Age: 76 Year
  Sex: Female
  Weight: 74.8 kg

DRUGS (2)
  1. ESTRACE [Suspect]
     Indication: CYSTITIS
     Dosage: 0.01%, Q TWO WEEKS, VAGINAL
     Route: 067
     Dates: start: 20050101
  2. FEMARA [Concomitant]

REACTIONS (2)
  - BREAST CANCER [None]
  - PALPITATIONS [None]
